FAERS Safety Report 17300173 (Version 1)
Quarter: 2020Q1

REPORT INFORMATION
  Report Type: Spontaneous
  Country: US (occurrence: US)
  Receive Date: 20200122
  Receipt Date: 20200122
  Transmission Date: 20200409
  Serious: No
  Sender: FDA-Public Use
  Company Number: US-ALLERGAN-1916108US

PATIENT
  Age: 74 Year
  Sex: Female

DRUGS (1)
  1. RESTASIS [Suspect]
     Active Substance: CYCLOSPORINE
     Indication: DRY EYE
     Dosage: 2 GTT, BID
     Route: 047

REACTIONS (6)
  - Accidental exposure to product [Unknown]
  - Product dose omission [Unknown]
  - Eye irritation [Recovered/Resolved]
  - Extra dose administered [Unknown]
  - Eyelid irritation [Recovered/Resolved]
  - Eyelid sensory disorder [Recovered/Resolved]

NARRATIVE: CASE EVENT DATE: 2019
